FAERS Safety Report 6492380-0 (Version None)
Quarter: 2009Q4

REPORT INFORMATION
  Report Type: 
  Country: None (occurrence: None)
  Receive Date: 20091208
  Receipt Date: 20091124
  Transmission Date: 20100525
  Serious: Yes (Disabling)
  Sender: FDA-Public Use
  Company Number: ADR52252009

PATIENT
  Age: 82 Year
  Sex: Male

DRUGS (2)
  1. CITALOPRAM, 10 MG (MFR: UNKNOWN) [Suspect]
     Indication: DEPRESSION
     Dosage: 10 MG, 1/1 DAYS
     Dates: start: 20060808, end: 20060811
  2. CITALOPRAM, 10 MG (MFR: UNKNOWN) [Suspect]
     Indication: PANIC ATTACK
     Dosage: 10 MG, 1/1 DAYS
     Dates: start: 20060808, end: 20060811

REACTIONS (4)
  - FACIAL PARESIS [None]
  - HALLUCINATION [None]
  - OEDEMA MOUTH [None]
  - TREMOR [None]
